FAERS Safety Report 9155334 (Version 1)
Quarter: 2013Q1

REPORT INFORMATION
  Report Type: Spontaneous
  Country: DE (occurrence: DE)
  Receive Date: 20130311
  Receipt Date: 20130311
  Transmission Date: 20140127
  Serious: Yes (Hospitalization)
  Sender: FDA-Public Use
  Company Number: DE-ROCHE-1165392

PATIENT
  Sex: Female
  Weight: 82.1 kg

DRUGS (8)
  1. AVASTIN [Suspect]
     Indication: OVARIAN CANCER
     Route: 065
     Dates: start: 20120619, end: 20120711
  2. AVASTIN [Suspect]
     Route: 065
     Dates: start: 20120725, end: 20120905
  3. AVASTIN [Suspect]
     Route: 065
     Dates: start: 20120926
  4. AVASTIN [Suspect]
     Route: 065
     Dates: start: 201212
  5. GEMCITABINE [Suspect]
     Indication: PRODUCT USED FOR UNKNOWN INDICATION
     Route: 065
     Dates: start: 20120619
  6. GEMCITABINE [Suspect]
     Route: 065
     Dates: start: 201212
  7. PANTOZOL [Concomitant]
     Route: 065
  8. RYTMONORM [Concomitant]
     Route: 065

REACTIONS (11)
  - Nausea [Not Recovered/Not Resolved]
  - Vomiting [Not Recovered/Not Resolved]
  - Diarrhoea [Not Recovered/Not Resolved]
  - Subileus [Not Recovered/Not Resolved]
  - Ascites [Recovered/Resolved]
  - Vomiting [Recovered/Resolved]
  - Palpitations [Unknown]
  - Mucous membrane disorder [Unknown]
  - Epistaxis [Not Recovered/Not Resolved]
  - Pruritus [Not Recovered/Not Resolved]
  - Asthenia [Not Recovered/Not Resolved]
